FAERS Safety Report 17083353 (Version 1)
Quarter: 2019Q4

REPORT INFORMATION
  Report Type: Report from Study
  Country: FR (occurrence: FR)
  Receive Date: 20191127
  Receipt Date: 20191127
  Transmission Date: 20200122
  Serious: Yes (Hospitalization)
  Sender: FDA-Public Use
  Company Number: FR-BEIGENE AUS PTY LTD-BGN-2019-001326

PATIENT

DRUGS (6)
  1. BGB-3111 [Suspect]
     Active Substance: ZANUBRUTINIB
     Dosage: 160 MILLIGRAM, BID
     Route: 048
     Dates: start: 20190729
  2. KARDEGIC [Concomitant]
     Active Substance: ASPIRIN DL-LYSINE
     Indication: PROPHYLAXIS
     Dosage: 75 MILLIGRAM, QID
     Route: 048
     Dates: start: 20181105
  3. BACTRIM [Concomitant]
     Active Substance: SULFAMETHOXAZOLE\TRIMETHOPRIM
     Indication: PROPHYLAXIS
     Dosage: 1 TABLET, 3 X WEEKLY
     Route: 048
  4. ZELITREX [Concomitant]
     Active Substance: VALACYCLOVIR HYDROCHLORIDE
     Indication: PROPHYLAXIS
     Dosage: 500 MILLIGRAM, QD
     Route: 065
     Dates: start: 20181105
  5. BGB-3111 [Suspect]
     Active Substance: ZANUBRUTINIB
     Indication: B-CELL LYMPHOMA
     Dosage: 160 MILLIGRAM, BID
     Route: 048
     Dates: start: 20190403, end: 20190711
  6. OBINUTUZUMAB. [Suspect]
     Active Substance: OBINUTUZUMAB
     Indication: LYMPHOMA
     Dosage: 1000 MILLIGRAM, EVERY 2MONTHS
     Route: 042
     Dates: start: 20181105

REACTIONS (2)
  - Lower respiratory tract infection [Recovered/Resolved]
  - Pleural effusion [Recovered/Resolved]

NARRATIVE: CASE EVENT DATE: 20190712
